FAERS Safety Report 8137300-8 (Version None)
Quarter: 2012Q1

REPORT INFORMATION
  Report Type: 
  Country: None (occurrence: None)
  Receive Date: 20120210
  Receipt Date: 20120201
  Transmission Date: 20120608
  Serious: Yes (Other)
  Sender: FDA-Public Use
  Company Number: 2012MA001640

PATIENT
  Sex: Female

DRUGS (1)
  1. ACYCLOVIR [Suspect]
     Dosage: U;U

REACTIONS (4)
  - DEPRESSION [None]
  - ALOPECIA [None]
  - EMOTIONAL DISTRESS [None]
  - SOCIAL AVOIDANT BEHAVIOUR [None]
